FAERS Safety Report 9168877 (Version 2)
Quarter: 2013Q1

REPORT INFORMATION
  Report Type: Spontaneous
  Country: US (occurrence: None)
  Receive Date: 20130305
  Receipt Date: 20130313
  Transmission Date: 20140127
  Serious: Yes (Other)
  Sender: FDA-Public Use
  Company Number: AUR-APL-2013-01620

PATIENT
  Age: 58 Year
  Sex: 0

DRUGS (2)
  1. RIBAVIRIN [Suspect]
     Indication: CHRONIC HEPATITIS
  2. INTERFERON [Suspect]
     Indication: CHRONIC HEPATITIS

REACTIONS (9)
  - Cryoglobulinaemia [None]
  - Pleural effusion [None]
  - Renal failure acute [None]
  - Glomerulonephritis membranoproliferative [None]
  - Purpura [None]
  - Arthralgia [None]
  - Pain in extremity [None]
  - Complement factor C4 decreased [None]
  - Complement factor C3 decreased [None]
